FAERS Safety Report 12938760 (Version 2)
Quarter: 2016Q4

REPORT INFORMATION
  Report Type: Spontaneous
  Country: US (occurrence: US)
  Receive Date: 20161115
  Receipt Date: 20161227
  Transmission Date: 20170207
  Serious: No
  Sender: FDA-Public Use
  Company Number: US-PFIZER INC-2016528787

PATIENT
  Age: 70 Year
  Sex: Female
  Weight: 79.38 kg

DRUGS (1)
  1. FUROSEMIDE. [Suspect]
     Active Substance: FUROSEMIDE
     Indication: SWELLING
     Dosage: UNK (OCCASIONALLY)
     Dates: start: 2006

REACTIONS (1)
  - No adverse event [Unknown]
